FAERS Safety Report 4509770-5 (Version None)
Quarter: 2004Q4

REPORT INFORMATION
  Report Type: 
  Country: None (occurrence: None)
  Receive Date: 20041124
  Receipt Date: 20040203
  Transmission Date: 20050328
  Serious: No
  Sender: FDA-Public Use
  Company Number: US-BRISTOL-MYERS SQUIBB COMPANY-12495859

PATIENT
  Age: 76 Year
  Sex: Female
  Weight: 77 kg

DRUGS (3)
  1. AVALIDE [Suspect]
     Indication: HYPERTENSION
     Dosage: DOSE VALUE: 150MG/12.5MG TABLETS
     Route: 048
     Dates: end: 20040201
  2. PLAVIX [Suspect]
     Indication: TRANSIENT ISCHAEMIC ATTACK
     Route: 048
     Dates: end: 20040201
  3. ANAGRELIDE HCL [Concomitant]
     Indication: PLATELET COUNT INCREASED
     Dates: end: 20040201

REACTIONS (9)
  - ANAEMIA [None]
  - ARTHRALGIA [None]
  - BLOOD POTASSIUM INCREASED [None]
  - FATIGUE [None]
  - HAEMATOCHEZIA [None]
  - HYPERTENSION [None]
  - PALPITATIONS [None]
  - PRODUCTIVE COUGH [None]
  - WHITE BLOOD CELL COUNT INCREASED [None]
